FAERS Safety Report 5381855-3 (Version None)
Quarter: 2007Q3

REPORT INFORMATION
  Report Type: 
  Country: None (occurrence: None)
  Receive Date: 20070705
  Receipt Date: 20070705
  Transmission Date: 20080115
  Serious: Yes (Life-Threatening, Hospitalization)
  Sender: FDA-Public Use
  Company Number: None

PATIENT
  Sex: Female
  Weight: 99.7913 kg

DRUGS (1)
  1. CYTOTEC [Suspect]
     Indication: LABOUR INDUCTION
     Dosage: HALF A PILL
     Dates: start: 20060131, end: 20060201

REACTIONS (4)
  - HYSTERECTOMY [None]
  - IMPAIRED HEALING [None]
  - OFF LABEL USE [None]
  - UTERINE RUPTURE [None]
